FAERS Safety Report 8059812-8 (Version None)
Quarter: 2012Q1

REPORT INFORMATION
  Report Type: 
  Country: None (occurrence: None)
  Receive Date: 20120119
  Receipt Date: 20120119
  Transmission Date: 20120608
  Serious: Yes (Hospitalization)
  Sender: FDA-Public Use
  Company Number: None

PATIENT
  Age: 43 Year
  Sex: Female
  Weight: 75 kg

DRUGS (8)
  1. GABAPENTIN [Concomitant]
  2. ARTIFICIAL TEARS [Concomitant]
  3. PROZAC [Suspect]
     Indication: BIPOLAR DISORDER
     Dosage: 40MG DAILY PO CHRONIC
     Route: 048
  4. KLONOPIN [Concomitant]
  5. LAMICTAL [Concomitant]
  6. GEODON [Suspect]
     Indication: BIPOLAR DISORDER
     Dosage: 80MG QSUPPER PO CHRONIC
     Route: 048
  7. AMBIEN [Concomitant]
  8. TRIVORA-21 [Concomitant]

REACTIONS (2)
  - RHABDOMYOLYSIS [None]
  - URINARY TRACT INFECTION [None]
